FAERS Safety Report 9836248 (Version 1)
Quarter: 2014Q1

REPORT INFORMATION
  Report Type: Spontaneous
  Country: FR (occurrence: FR)
  Receive Date: 20140123
  Receipt Date: 20140123
  Transmission Date: 20141002
  Serious: Yes (Other)
  Sender: FDA-Public Use
  Company Number: FR-ROCHE-1336173

PATIENT
  Age: 33 Year
  Sex: Male

DRUGS (1)
  1. XOLAIR [Suspect]
     Indication: ASTHMA
     Route: 058
     Dates: start: 201211, end: 201311

REACTIONS (2)
  - Adrenal disorder [Not Recovered/Not Resolved]
  - Weight increased [Not Recovered/Not Resolved]
